FAERS Safety Report 19849539 (Version 1)
Quarter: 2021Q3

REPORT INFORMATION
  Report Type: Spontaneous
  Country: FR (occurrence: FR)
  Receive Date: 20210917
  Receipt Date: 20210917
  Transmission Date: 20211014
  Serious: Yes (Death, Life-Threatening, Hospitalization, Other)
  Sender: FDA-Public Use
  Company Number: FR-ASTRAZENECA-2021A728073

PATIENT
  Age: 26410 Day
  Sex: Female

DRUGS (22)
  1. ATORVASTATINE [Concomitant]
     Active Substance: ATORVASTATIN
  2. KARDEGIC [Concomitant]
     Active Substance: ASPIRIN DL-LYSINE
  3. ROCEPHINE [Concomitant]
     Active Substance: CEFTRIAXONE SODIUM
  4. ETOMIDATE. [Concomitant]
     Active Substance: ETOMIDATE
  5. NORADRENALIN [Concomitant]
     Active Substance: NOREPINEPHRINE\NOREPINEPHRINE BITARTRATE
  6. ROVAMYCINE [Concomitant]
     Active Substance: SPIRAMYCIN
  7. CIPROFLOXACINE [Concomitant]
     Active Substance: CIPROFLOXACIN
  8. MEROPENEM. [Concomitant]
     Active Substance: MEROPENEM
  9. LASILIX [Concomitant]
     Active Substance: FUROSEMIDE
  10. NEBIVOLOL. [Concomitant]
     Active Substance: NEBIVOLOL
  11. AMIKLIN [Concomitant]
     Active Substance: AMIKACIN SULFATE
  12. METFORMIN [Suspect]
     Active Substance: METFORMIN HYDROCHLORIDE
     Route: 065
  13. CANDESARTAN. [Concomitant]
     Active Substance: CANDESARTAN
  14. PRADAXA [Concomitant]
     Active Substance: DABIGATRAN ETEXILATE MESYLATE
     Dosage: 1 TABLET TWICE DAILY
  15. CEFTRIAXONE. [Concomitant]
     Active Substance: CEFTRIAXONE
  16. CELOCURINE [Concomitant]
     Active Substance: SUCCINYLCHOLINE
  17. HYDROCORTISONE. [Concomitant]
     Active Substance: HYDROCORTISONE
  18. XIGDUO XR [Suspect]
     Active Substance: DAPAGLIFLOZIN PROPANEDIOL\METFORMIN HYDROCHLORIDE
     Indication: TYPE 2 DIABETES MELLITUS
     Dosage: UNKNOWN
     Route: 048
  19. INSPRA [Concomitant]
     Active Substance: EPLERENONE
  20. DIAMICRON [Concomitant]
     Active Substance: GLICLAZIDE
     Dosage: A HALF TO 4 TABLETS IN BREAKFAST AND IN THE END
  21. AMIKLIN [Concomitant]
     Active Substance: AMIKACIN SULFATE
  22. DABIGATRAN [Concomitant]
     Active Substance: DABIGATRAN

REACTIONS (8)
  - Microcytic anaemia [Unknown]
  - Hepatic failure [Fatal]
  - Toxicity to various agents [Fatal]
  - Cardiac failure acute [Fatal]
  - Septic shock [Fatal]
  - Pyelonephritis [Fatal]
  - Haemodynamic instability [Fatal]
  - Renal failure [Fatal]

NARRATIVE: CASE EVENT DATE: 20210524
